FAERS Safety Report 4365674-2 (Version None)
Quarter: 2004Q2

REPORT INFORMATION
  Report Type: 
  Country: None (occurrence: None)
  Receive Date: 20040527
  Receipt Date: 20040422
  Transmission Date: 20050107
  Serious: Yes (Other)
  Sender: FDA-Public Use
  Company Number: PHBS2004BE05794

PATIENT
  Age: 49 Year
  Sex: Female

DRUGS (3)
  1. ZOMETA [Suspect]
     Indication: MULTIPLE MYELOMA
     Route: 065
     Dates: start: 20030101
  2. THALIDOMIDE [Concomitant]
     Route: 065
     Dates: start: 20030601
  3. MELPHALAN [Concomitant]
     Dates: start: 20030101

REACTIONS (6)
  - FIBROUS DYSPLASIA OF BONE [None]
  - GINGIVITIS [None]
  - OSTEOMYELITIS [None]
  - OSTEONECROSIS [None]
  - PRIMARY SEQUESTRUM [None]
  - TOOTH EXTRACTION [None]
